FAERS Safety Report 18777082 (Version 3)
Quarter: 2021Q1

REPORT INFORMATION
  Report Type: Spontaneous
  Country: US (occurrence: US)
  Receive Date: 20210122
  Receipt Date: 20210208
  Transmission Date: 20210419
  Serious: No
  Sender: FDA-Public Use
  Company Number: US-BAYER-2021-035570

PATIENT
  Age: 58 Year
  Sex: Female

DRUGS (1)
  1. KOGENATE FS [Suspect]
     Active Substance: ANTIHEMOPHILIC FACTOR, HUMAN RECOMBINANT
     Dosage: 1815 U
     Route: 042

REACTIONS (3)
  - Neck pain [None]
  - Musculoskeletal stiffness [None]
  - Drug delivery device placement [None]

NARRATIVE: CASE EVENT DATE: 20210119
